FAERS Safety Report 8049576-6 (Version None)
Quarter: 2012Q1

REPORT INFORMATION
  Report Type: 
  Country: None (occurrence: None)
  Receive Date: 20120117
  Receipt Date: 20120110
  Transmission Date: 20120608
  Serious: Yes (Life-Threatening)
  Sender: FDA-Public Use
  Company Number: BR-ROCHE-1029352

PATIENT
  Sex: Male
  Weight: 81 kg

DRUGS (2)
  1. UNSPECIFIED DRUG [Concomitant]
     Route: 048
     Dates: start: 20110201
  2. CLONAZEPAM [Suspect]
     Indication: SUICIDAL BEHAVIOUR
     Route: 048
     Dates: start: 20111208

REACTIONS (3)
  - DRUG INEFFECTIVE [None]
  - SUICIDE ATTEMPT [None]
  - OVERDOSE [None]
